FAERS Safety Report 5961604-8 (Version None)
Quarter: 2008Q4

REPORT INFORMATION
  Report Type: 
  Country: None (occurrence: None)
  Receive Date: 20081119
  Receipt Date: 20081028
  Transmission Date: 20090506
  Serious: Yes (Hospitalization)
  Sender: FDA-Public Use
  Company Number: 2008-186641-NL

PATIENT
  Age: 70 Year
  Sex: Female

DRUGS (1)
  1. MIRTAZAPINE [Suspect]

REACTIONS (6)
  - AKATHISIA [None]
  - DYSARTHRIA [None]
  - HYPERTENSION [None]
  - OVERDOSE [None]
  - TACHYCARDIA [None]
  - TREMOR [None]
